FAERS Safety Report 5392229-3 (Version None)
Quarter: 2007Q3

REPORT INFORMATION
  Report Type: 
  Country: None (occurrence: None)
  Receive Date: 20070720
  Receipt Date: 20070718
  Transmission Date: 20080115
  Serious: Yes (Life-Threatening)
  Sender: FDA-Public Use
  Company Number: JP-ASTRAZENECA-2007AP04065

PATIENT
  Age: 26033 Day
  Sex: Male
  Weight: 60 kg

DRUGS (12)
  1. OMEPRAZOLE [Suspect]
     Indication: GASTRIC ULCER
     Route: 048
     Dates: start: 20070608, end: 20070617
  2. OMEPRAZOLE [Suspect]
     Route: 041
     Dates: start: 20070530, end: 20070607
  3. AMLODIPINE [Suspect]
     Indication: ANGINA PECTORIS
     Route: 048
     Dates: start: 20040501, end: 20070620
  4. DIOVAN [Suspect]
     Indication: HYPERTENSION
     Route: 048
     Dates: start: 20040830, end: 20070620
  5. SIGMART [Suspect]
     Indication: ANGINA PECTORIS
     Route: 048
     Dates: start: 20040830, end: 20070620
  6. SIMVASTATIN [Suspect]
     Indication: HYPERLIPIDAEMIA
     Route: 048
     Dates: start: 20041102, end: 20070620
  7. RHYTHMY [Suspect]
     Indication: INSOMNIA
     Route: 048
     Dates: start: 20040101, end: 20070620
  8. TICLOPIDINE HCL [Suspect]
     Indication: ANGINA PECTORIS
     Route: 048
     Dates: start: 20060720, end: 20070620
  9. ASPIRIN [Suspect]
     Indication: ANGINA PECTORIS
     Route: 048
     Dates: start: 20060720, end: 20070620
  10. RABEPRAZOLE SODIUM [Suspect]
     Indication: ANGINA PECTORIS
     Route: 048
     Dates: start: 20060720, end: 20070620
  11. FAMOTIDINE [Suspect]
     Indication: GASTRIC ULCER
     Route: 042
     Dates: start: 20070617, end: 20070625
  12. VITAMEDIN [Concomitant]
     Indication: NUTRITIONAL SUPPORT
     Route: 041
     Dates: start: 20070530

REACTIONS (5)
  - DISSEMINATED INTRAVASCULAR COAGULATION [None]
  - LIVER DISORDER [None]
  - PANCYTOPENIA [None]
  - PNEUMONIA [None]
  - TOXIC EPIDERMAL NECROLYSIS [None]
